FAERS Safety Report 10510197 (Version 1)
Quarter: 2014Q4

REPORT INFORMATION
  Report Type: Spontaneous
  Country: US (occurrence: US)
  Receive Date: 20141010
  Receipt Date: 20141010
  Transmission Date: 20150528
  Serious: Yes (Other)
  Sender: FDA-Public Use
  Company Number: US-SA-2014SA136436

PATIENT
  Age: 78 Year
  Sex: Female

DRUGS (8)
  1. SOLOSTAR [Concomitant]
     Active Substance: DEVICE
     Indication: DEVICE THERAPY
  2. LIBRAX /SCH/ [Concomitant]
     Indication: IRRITABLE BOWEL SYNDROME
  3. A AND D [Concomitant]
     Active Substance: DIMETHICONE\PETROLATUM\ZINC OXIDE
     Route: 061
  4. LANTUS SOLOSTAR [Suspect]
     Active Substance: INSULIN GLARGINE
     Indication: TYPE 2 DIABETES MELLITUS
     Dosage: DOSE:5 UNIT(S)
     Route: 065
     Dates: start: 20140915
  5. GLUCERNA ^ABBOTT^ [Concomitant]
  6. ENSURE [Concomitant]
     Active Substance: AMINO ACIDS\DEXTROSE\ELECTROLYTES NOS\SOYBEAN OIL\VITAMINS
  7. LANTUS SOLOSTAR [Suspect]
     Active Substance: INSULIN GLARGINE
     Indication: TYPE 2 DIABETES MELLITUS
     Dosage: DOSE:6 UNIT(S)
     Route: 065
  8. ALL OTHER THERAPEUTIC PRODUCTS [Concomitant]
     Active Substance: UNSPECIFIED INGREDIENT

REACTIONS (6)
  - Rectocele [Unknown]
  - Reading disorder [Unknown]
  - Skin discolouration [Unknown]
  - Renal cyst [Unknown]
  - Hydronephrosis [Unknown]
  - Blood glucose increased [Unknown]
